FAERS Safety Report 9057334 (Version 1)
Quarter: 2013Q1

REPORT INFORMATION
  Report Type: Spontaneous
  Country: US (occurrence: US)
  Receive Date: 20130204
  Receipt Date: 20130204
  Transmission Date: 20140127
  Serious: Yes (Hospitalization)
  Sender: FDA-Public Use
  Company Number: US-009507513-1204USA01079

PATIENT
  Age: 61 Year
  Sex: Female
  Weight: 98 kg

DRUGS (16)
  1. ZOCOR [Suspect]
     Indication: BLOOD CHOLESTEROL INCREASED
     Dosage: 5 MG, QD
     Route: 048
     Dates: start: 20100601, end: 20110209
  2. ZOCOR [Suspect]
     Dosage: 40 MG, QD
     Route: 048
     Dates: start: 20110209, end: 20130120
  3. PAXIL [Concomitant]
     Indication: DEPRESSION
     Dosage: 40 MG, QD
     Route: 048
     Dates: start: 20020201
  4. PAXIL [Concomitant]
     Indication: SOCIAL PHOBIA
  5. LYRICA [Concomitant]
     Indication: PAIN IN EXTREMITY
     Dosage: 150 MG, QD
     Route: 048
     Dates: start: 20060701
  6. LYRICA [Concomitant]
     Indication: CHRONIC FATIGUE SYNDROME
  7. LYRICA [Concomitant]
     Indication: FIBROMYALGIA
  8. ATREXEL [Concomitant]
     Indication: PSORIASIS
  9. VICODIN [Concomitant]
     Indication: PAIN
     Dosage: 500MG-5 MG
     Dates: start: 20070901
  10. NAPROXEN [Concomitant]
     Indication: OSTEOARTHRITIS
  11. XANAX [Concomitant]
     Indication: ANXIETY
     Dosage: 0.25 MG, PRN
     Dates: start: 20090114
  12. XANAX [Concomitant]
     Indication: POOR QUALITY SLEEP
  13. SYNTHROID [Concomitant]
     Indication: HYPOTHYROIDISM
     Dosage: 0.1 MG, QD
     Route: 048
     Dates: start: 20100920
  14. AMBIEN CR [Concomitant]
     Indication: SLEEP DISORDER
     Dosage: 12.5 MG, QD
     Route: 048
     Dates: start: 20100327
  15. OXYCONTIN [Concomitant]
     Indication: PAIN
     Dosage: 10 MG, PRN
     Dates: start: 20110110
  16. OXYCONTIN [Concomitant]
     Indication: FIBROMYALGIA

REACTIONS (5)
  - Irritable bowel syndrome [Unknown]
  - Enterocolitis infectious [Unknown]
  - Arthropathy [Unknown]
  - Abdominal distension [Unknown]
  - Abdominal pain [Unknown]
